FAERS Safety Report 9855572 (Version 1)
Quarter: 2014Q1

REPORT INFORMATION
  Report Type: Spontaneous
  Country: US (occurrence: None)
  Receive Date: 20140129
  Receipt Date: 20140129
  Transmission Date: 20141002
  Serious: Yes (Death)
  Sender: FDA-Public Use
  Company Number: None

PATIENT
  Age: 69 Year
  Sex: Male
  Weight: 140.9 kg

DRUGS (10)
  1. XARELTO [Suspect]
     Indication: PULMONARY EMBOLISM
     Dosage: 15MG, BID WITH MEALS, PO
     Route: 048
     Dates: start: 20131103
  2. ALPRAZOLAM [Concomitant]
  3. WARFARIN [Concomitant]
  4. POTASSIUM CHLORIDE [Concomitant]
  5. HEPARIN [Concomitant]
  6. OMEPRAZOLE [Concomitant]
  7. DOSS [Concomitant]
  8. METOLAZONE [Concomitant]
  9. BUPROPRION SR [Concomitant]
  10. ARIPIPRAZOLE [Concomitant]

REACTIONS (1)
  - Cardio-respiratory arrest [None]
